FAERS Safety Report 21232811 (Version 1)
Quarter: 2022Q3

REPORT INFORMATION
  Report Type: Spontaneous
  Country: US (occurrence: None)
  Receive Date: 20220819
  Receipt Date: 20220819
  Transmission Date: 20221027
  Serious: Yes (Death)
  Sender: FDA-Public Use
  Company Number: 2022A289226

PATIENT
  Age: 28532 Day
  Sex: Male
  Weight: 60.8 kg

DRUGS (1)
  1. SYMBICORT [Suspect]
     Active Substance: BUDESONIDE\FORMOTEROL FUMARATE DIHYDRATE
     Indication: Chronic obstructive pulmonary disease
     Dosage: 2 INHALATIONS 2 TIMES A DAY
     Route: 055
     Dates: end: 20220703

REACTIONS (1)
  - Death [Fatal]

NARRATIVE: CASE EVENT DATE: 20220703
